FAERS Safety Report 4578639-2 (Version None)
Quarter: 2005Q1

REPORT INFORMATION
  Report Type: 
  Country: None (occurrence: None)
  Receive Date: 20050207
  Receipt Date: 20050207
  Transmission Date: 20050727
  Serious: Yes (Hospitalization)
  Sender: FDA-Public Use
  Company Number: None

PATIENT
  Age: 75 Year
  Sex: Female

DRUGS (1)
  1. ENBREL [Suspect]
     Indication: RHEUMATOID ARTHRITIS
     Dosage: 50 MG   EVERY WEEK   SUBCUTANEO
     Route: 058
     Dates: start: 20041001, end: 20050126

REACTIONS (2)
  - PNEUMONIA [None]
  - RESPIRATORY DISORDER [None]
